FAERS Safety Report 23056408 (Version 2)
Quarter: 2025Q4

REPORT INFORMATION
  Report Type: Spontaneous
  Country: CH (occurrence: CH)
  Receive Date: 20231011
  Receipt Date: 20251203
  Transmission Date: 20260117
  Serious: Yes (Other)
  Sender: MERCK SHARP & DOHME LLC
  Company Number: None

PATIENT
  Age: 32 Year
  Sex: Female

DRUGS (1)
  1. KEYTRUDA [Suspect]
     Active Substance: PEMBROLIZUMAB
     Indication: Malignant melanoma stage III
     Dosage: DOSE DESCRIPTION : 1 DOSAGE FORM, Q3W?DAILY DOSE : 0.047 DOSAGE FORM?REGIMEN DOSE : 18  DOSAGE FORM
     Dates: start: 20190624, end: 20200625

REACTIONS (1)
  - Abortion late [Recovered/Resolved]

NARRATIVE: CASE EVENT DATE: 20230830
